FAERS Safety Report 6367921-4 (Version None)
Quarter: 2009Q3

REPORT INFORMATION
  Report Type: 
  Country: None (occurrence: None)
  Receive Date: 20090922
  Receipt Date: 20081118
  Transmission Date: 20100115
  Serious: No
  Sender: FDA-Public Use
  Company Number: A0747502A

PATIENT
  Age: 51 Year
  Sex: Female

DRUGS (5)
  1. SEREVENT [Suspect]
     Indication: ASTHMA
     Dosage: 1PUFF TWICE PER DAY
     Route: 055
     Dates: start: 20080801
  2. CHANTIX [Concomitant]
  3. FLEXICAMIN [Concomitant]
  4. CENTRUM SILVER [Concomitant]
  5. ADVIL [Concomitant]

REACTIONS (3)
  - DRUG INEFFECTIVE [None]
  - DYSPNOEA [None]
  - PRODUCT QUALITY ISSUE [None]
